FAERS Safety Report 6011034-8 (Version None)
Quarter: 2008Q4

REPORT INFORMATION
  Report Type: 
  Country: None (occurrence: None)
  Receive Date: 20081218
  Receipt Date: 20081209
  Transmission Date: 20090506
  Serious: Yes (Life-Threatening, Other)
  Sender: FDA-Public Use
  Company Number: GB-PFIZER INC-2008154429

PATIENT

DRUGS (4)
  1. CHAMPIX [Suspect]
     Dosage: UNK
     Route: 048
  2. PREDNISOLONE [Concomitant]
     Dosage: UNK
     Route: 048
     Dates: start: 20080101, end: 20080101
  3. SYMBICORT [Concomitant]
     Dosage: UNK
     Dates: start: 20080801, end: 20080801
  4. TIOTROPIUM BROMIDE [Concomitant]
     Dosage: UNK
     Dates: start: 20080801

REACTIONS (1)
  - DEEP VEIN THROMBOSIS [None]
